FAERS Safety Report 5746834-2 (Version None)
Quarter: 2008Q2

REPORT INFORMATION
  Report Type: 
  Country: None (occurrence: None)
  Receive Date: 20080522
  Receipt Date: 20080514
  Transmission Date: 20081010
  Serious: Yes (Hospitalization)
  Sender: FDA-Public Use
  Company Number: CO-PFIZER INC-2007056335

PATIENT
  Sex: Male
  Weight: 69 kg

DRUGS (12)
  1. SU-011,248 [Suspect]
     Indication: RENAL CELL CARCINOMA
     Route: 048
     Dates: start: 20060516, end: 20070628
  2. SU-011,248 [Suspect]
     Route: 048
     Dates: start: 20070731, end: 20070820
  3. FUROSEMIDE [Concomitant]
     Route: 048
  4. ALLOPURINOL [Concomitant]
     Route: 048
  5. GLYBURIDE [Concomitant]
     Route: 048
  6. LEVOTHYROXINE SODIUM [Concomitant]
     Route: 048
  7. LOVASTATIN [Concomitant]
     Route: 048
  8. OMEPRAZOLE [Concomitant]
     Route: 048
  9. LIDOCAINE [Concomitant]
     Route: 061
  10. PRAZOSIN HCL [Concomitant]
     Route: 048
  11. NYSTATIN [Concomitant]
     Route: 061
  12. SUCRALFATE [Concomitant]
     Route: 061

REACTIONS (1)
  - ANGIOEDEMA [None]
